FAERS Safety Report 10664427 (Version 2)
Quarter: 2015Q1

REPORT INFORMATION
  Report Type: Spontaneous
  Country: IT (occurrence: IT)
  Receive Date: 20141219
  Receipt Date: 20150105
  Transmission Date: 20150720
  Serious: Yes (Other)
  Sender: FDA-Public Use
  Company Number: IT-PFIZER INC-2014349519

PATIENT
  Age: 65 Year
  Sex: Male

DRUGS (6)
  1. FENOFIBRATO [Interacting]
     Active Substance: FENOFIBRATE
     Indication: HYPERTRIGLYCERIDAEMIA
     Dosage: 145 MG, DAILY
     Route: 048
     Dates: start: 20141028
  2. ATENOL [Concomitant]
     Active Substance: ATENOLOL
     Dosage: 100 MG DAILY
  3. LANOXIN [Concomitant]
     Active Substance: DIGOXIN
     Dosage: 0.12 MG, DAILY
  4. COAPROVEL [Concomitant]
     Active Substance: HYDROCHLOROTHIAZIDE\IRBESARTAN
     Dosage: 162.5 MG, DAILY
  5. DEPO-MEDROL [Suspect]
     Active Substance: METHYLPREDNISOLONE ACETATE
     Indication: RASH GENERALISED
     Dosage: 40 MG, TOTAL
     Route: 030
     Dates: start: 20141104, end: 20141104
  6. COUMADIN [Interacting]
     Active Substance: WARFARIN SODIUM
     Indication: CEREBROVASCULAR ACCIDENT PROPHYLAXIS
     Dosage: 40 MG, WEEKLY
     Route: 048
     Dates: start: 20040701, end: 20141114

REACTIONS (2)
  - Drug interaction [Unknown]
  - International normalised ratio increased [Recovered/Resolved]

NARRATIVE: CASE EVENT DATE: 20141114
